FAERS Safety Report 24121035 (Version 1)
Quarter: 2024Q3

REPORT INFORMATION
  Report Type: Spontaneous
  Country: US (occurrence: None)
  Receive Date: 20240718
  Receipt Date: 20240718
  Transmission Date: 20241016
  Serious: No
  Sender: Public
  Company Number: None

PATIENT
  Age: 52 Year
  Sex: Male
  Weight: 72 kg

DRUGS (6)
  1. TRIAMCINOLONE ACETONIDE [Suspect]
     Active Substance: TRIAMCINOLONE ACETONIDE
     Indication: Dermatitis contact
     Dosage: FREQUENCY : TWICE A DAY;?
     Route: 061
     Dates: start: 20240627, end: 20240712
  2. LAMICTAL [Concomitant]
     Active Substance: LAMOTRIGINE
  3. PROVIGIL [Concomitant]
     Active Substance: MODAFINIL
  4. SIMVASTATIN [Concomitant]
     Active Substance: SIMVASTATIN
  5. LISINOPRIL [Concomitant]
     Active Substance: LISINOPRIL
  6. OMEPRAZOLE [Concomitant]
     Active Substance: OMEPRAZOLE

REACTIONS (2)
  - Feeling abnormal [None]
  - Parosmia [None]

NARRATIVE: CASE EVENT DATE: 20240701
